FAERS Safety Report 12672113 (Version 1)
Quarter: 2016Q3

REPORT INFORMATION
  Report Type: Spontaneous
  Country: US (occurrence: US)
  Receive Date: 20160822
  Receipt Date: 20160822
  Transmission Date: 20161109
  Serious: No
  Sender: FDA-Public Use
  Company Number: US-BAUSCH-BL-2016-011133

PATIENT
  Age: 62 Year
  Sex: Female
  Weight: 54.48 kg

DRUGS (12)
  1. ZANTAC [Concomitant]
     Active Substance: RANITIDINE HYDROCHLORIDE
     Indication: MAST CELL ACTIVATION SYNDROME
     Route: 048
  2. AZELASTINE [Concomitant]
     Active Substance: AZELASTINE
     Indication: MAST CELL ACTIVATION SYNDROME
     Route: 047
  3. RECLAST [Concomitant]
     Active Substance: ZOLEDRONIC ACID
     Indication: OSTEOPOROSIS
     Route: 050
  4. VALIUM [Concomitant]
     Active Substance: DIAZEPAM
     Indication: MAST CELL ACTIVATION SYNDROME
     Route: 048
  5. RESTASIS [Concomitant]
     Active Substance: CYCLOSPORINE
     Indication: DRY EYE
     Route: 047
  6. CROMOLYN SODIUM. [Concomitant]
     Active Substance: CROMOLYN SODIUM
     Indication: MAST CELL ACTIVATION SYNDROME
     Route: 048
  7. MULTIVITAMIN [Concomitant]
     Active Substance: VITAMINS
     Indication: SUPPLEMENTATION THERAPY
     Route: 048
  8. ZEGERID [Suspect]
     Active Substance: OMEPRAZOLE\SODIUM BICARBONATE
     Indication: GASTROOESOPHAGEAL REFLUX DISEASE
     Route: 048
     Dates: start: 20160504, end: 20160506
  9. VITAMIN D [Concomitant]
     Active Substance: CHOLECALCIFEROL
     Indication: OSTEOPOROSIS
     Dosage: 50,000 UNITS
     Route: 048
  10. CALCIUM [Concomitant]
     Active Substance: CALCIUM
     Indication: OSTEOPOROSIS
     Route: 048
  11. ZANTAC [Concomitant]
     Active Substance: RANITIDINE HYDROCHLORIDE
     Indication: GASTROOESOPHAGEAL REFLUX DISEASE
  12. ASTELIN [Concomitant]
     Active Substance: AZELASTINE HYDROCHLORIDE
     Indication: MAST CELL ACTIVATION SYNDROME
     Route: 045

REACTIONS (1)
  - Dyspepsia [Not Recovered/Not Resolved]

NARRATIVE: CASE EVENT DATE: 20160505
